FAERS Safety Report 5635514-X (Version None)
Quarter: 2008Q1

REPORT INFORMATION
  Report Type: 
  Country: None (occurrence: None)
  Receive Date: 20080131
  Receipt Date: 20071203
  Transmission Date: 20080703
  Serious: No
  Sender: FDA-Public Use
  Company Number: US200712000360

PATIENT
  Age: 69 Year
  Sex: Female
  Weight: 115.6 kg

DRUGS (17)
  1. BYETTA [Suspect]
     Dosage: SEE IMAGE
     Route: 058
     Dates: start: 20050101, end: 20050101
  2. BYETTA [Suspect]
     Dosage: SEE IMAGE
     Route: 058
     Dates: start: 20050101, end: 20050101
  3. BYETTA [Suspect]
     Dosage: SEE IMAGE
     Route: 058
     Dates: start: 20050101
  4. BYETTA [Suspect]
     Dosage: SEE IMAGE
     Route: 058
     Dates: start: 20050101
  5. BYETTA [Suspect]
  6. METFORMIN HCL [Concomitant]
  7. MICARDIS [Concomitant]
  8. CATAPRES [Concomitant]
  9. VERAPAMIL [Concomitant]
  10. ALLEGRA [Concomitant]
  11. SINGULAIR [Concomitant]
  12. ALBUTEROL [Concomitant]
  13. FLOVENT [Concomitant]
  14. SEREVENT [Concomitant]
  15. NEXIUM [Concomitant]
  16. VITAMIN B12 [Concomitant]
  17. IRON (IRON) [Concomitant]

REACTIONS (3)
  - BLOOD GLUCOSE DECREASED [None]
  - DIZZINESS [None]
  - POLYP [None]
